FAERS Safety Report 24399262 (Version 3)
Quarter: 2025Q3

REPORT INFORMATION
  Report Type: Report from Study
  Country: JP (occurrence: JP)
  Receive Date: 20241004
  Receipt Date: 20250810
  Transmission Date: 20251020
  Serious: Yes (Hospitalization)
  Sender: ALEXION PHARMACEUTICALS
  Company Number: JP-ALXN-202203JPN000003JP

PATIENT
  Age: 6 Year
  Sex: Female
  Weight: 15.2 kg

DRUGS (6)
  1. STRENSIQ [Suspect]
     Active Substance: ASFOTASE ALFA
     Indication: Hypophosphatasia
     Dosage: 2 MILLIGRAM/KILOGRAM, TIW
     Dates: start: 20170817, end: 20180215
  2. STRENSIQ [Suspect]
     Active Substance: ASFOTASE ALFA
     Dates: start: 20180215, end: 20180531
  3. STRENSIQ [Suspect]
     Active Substance: ASFOTASE ALFA
     Dosage: 2 MILLIGRAM/KILOGRAM, TIW
     Dates: start: 20180531
  4. STRENSIQ [Suspect]
     Active Substance: ASFOTASE ALFA
     Dates: start: 20210816, end: 20221007
  5. STRENSIQ [Suspect]
     Active Substance: ASFOTASE ALFA
     Dosage: 2 MILLIGRAM/KILOGRAM, QW
     Dates: start: 20221008
  6. STRENSIQ [Suspect]
     Active Substance: ASFOTASE ALFA
     Dosage: 2 MILLIGRAM/KILOGRAM, Q2W

REACTIONS (2)
  - Henoch-Schonlein purpura [Recovered/Resolved]
  - Off label use [Unknown]

NARRATIVE: CASE EVENT DATE: 20231121
